FAERS Safety Report 8830286 (Version 5)
Quarter: 2013Q1

REPORT INFORMATION
  Report Type: Report from Study
  Country: GB (occurrence: GB)
  Receive Date: 20121009
  Receipt Date: 20130115
  Transmission Date: 20140127
  Serious: Yes (Hospitalization)
  Sender: FDA-Public Use
  Company Number: GB-JNJFOC-20121004055

PATIENT
  Age: 86 Year
  Sex: Female
  Weight: 70.6 kg

DRUGS (7)
  1. ABIRATERONE ACETATE [Suspect]
     Indication: BREAST CANCER
     Dosage: CYCLE 1
     Route: 048
     Dates: start: 20120830, end: 20120919
  2. ABIRATERONE ACETATE [Suspect]
     Indication: BREAST CANCER
     Route: 048
     Dates: start: 20120922
  3. HYDROCORTISONE [Concomitant]
     Route: 048
     Dates: end: 20120904
  4. HYDROCORTISONE [Concomitant]
     Route: 048
     Dates: start: 20120905
  5. PARACETAMOL [Concomitant]
     Indication: PAIN
     Route: 048
  6. ZOLEDRONIC ACID [Concomitant]
     Route: 042
  7. POTASSIUM [Concomitant]
     Indication: PRODUCT USED FOR UNKNOWN INDICATION
     Route: 065

REACTIONS (4)
  - Hypokalaemia [Recovered/Resolved]
  - Lymphoedema [Not Recovered/Not Resolved]
  - Vomiting [Recovered/Resolved]
  - Dizziness [Recovered/Resolved]
